FAERS Safety Report 6914417-4 (Version None)
Quarter: 2010Q3

REPORT INFORMATION
  Report Type: 
  Country: None (occurrence: None)
  Receive Date: 20100809
  Receipt Date: 20100729
  Transmission Date: 20110219
  Serious: Yes (Other)
  Sender: FDA-Public Use
  Company Number: US-PFIZER INC-2010096109

PATIENT
  Sex: Female

DRUGS (1)
  1. XALATAN [Suspect]
     Dosage: UNK
     Route: 047

REACTIONS (3)
  - CEREBROVASCULAR ACCIDENT [None]
  - IMPAIRED DRIVING ABILITY [None]
  - VISUAL FIELD DEFECT [None]
